FAERS Safety Report 5173262-3 (Version None)
Quarter: 2006Q4

REPORT INFORMATION
  Report Type: 
  Country: None (occurrence: None)
  Receive Date: 20061206
  Receipt Date: 20061128
  Transmission Date: 20070319
  Serious: Yes (Other)
  Sender: FDA-Public Use
  Company Number: HQWYE107609AUG04

PATIENT
  Age: 49 Year
  Sex: Female
  Weight: 86.26 kg

DRUGS (2)
  1. PREMARIN [Suspect]
  2. PROVERA [Suspect]

REACTIONS (8)
  - BREAST CANCER METASTATIC [None]
  - METASTASES TO ABDOMINAL CAVITY [None]
  - METASTASES TO BONE [None]
  - METASTASES TO CHEST WALL [None]
  - METASTASES TO SPINE [None]
  - MULTIPLE MYELOMA [None]
  - OESTROGEN RECEPTOR ASSAY POSITIVE [None]
  - PROGESTERONE RECEPTOR ASSAY POSITIVE [None]
